FAERS Safety Report 20979286 (Version 4)
Quarter: 2022Q3

REPORT INFORMATION
  Report Type: Spontaneous
  Country: US (occurrence: US)
  Receive Date: 20220620
  Receipt Date: 20220923
  Transmission Date: 20221026
  Serious: No
  Sender: FDA-Public Use
  Company Number: US-JNJFOC-20220614896

PATIENT
  Sex: Male
  Weight: 116.22 kg

DRUGS (1)
  1. TREMFYA [Suspect]
     Active Substance: GUSELKUMAB
     Indication: Psoriasis
     Route: 058
     Dates: start: 202112

REACTIONS (3)
  - Liquid product physical issue [Unknown]
  - Product colour issue [Unknown]
  - Product dose omission issue [Unknown]
